FAERS Safety Report 7600891-7 (Version None)
Quarter: 2011Q2

REPORT INFORMATION
  Report Type: 
  Country: None (occurrence: None)
  Receive Date: 20110629
  Receipt Date: 20110615
  Transmission Date: 20111010
  Serious: Yes (Hospitalization, Other)
  Sender: FDA-Public Use
  Company Number: 2011MA007211

PATIENT
  Age: 59 Year
  Sex: Male

DRUGS (2)
  1. BUPROPION HYDROCHLORIDE [Suspect]
     Indication: DEPRESSION
     Dosage: 150 MG; 1X;
  2. RISPERIDONE [Concomitant]

REACTIONS (5)
  - PYREXIA [None]
  - CONDITION AGGRAVATED [None]
  - CHILLS [None]
  - HEPATITIS TOXIC [None]
  - DEPRESSION [None]
